FAERS Safety Report 6774716-6 (Version None)
Quarter: 2010Q2

REPORT INFORMATION
  Report Type: 
  Country: None (occurrence: None)
  Receive Date: 20100617
  Receipt Date: 20100607
  Transmission Date: 20101027
  Serious: Yes (Hospitalization)
  Sender: FDA-Public Use
  Company Number: CH-BRISTOL-MYERS SQUIBB COMPANY-15137391

PATIENT
  Age: 25 Year
  Sex: Female

DRUGS (5)
  1. ETOPOSIDE [Suspect]
  2. CYCLOPHOSPHAMIDE [Suspect]
  3. VINCRISTINE SULFATE [Suspect]
  4. METHOTREXATE [Suspect]
  5. DACTINOMYCIN [Suspect]

REACTIONS (4)
  - LEUKOPENIA [None]
  - OVARIAN CYST [None]
  - SEPTIC SHOCK [None]
  - UTERINE PERFORATION [None]
